FAERS Safety Report 5200928-9 (Version None)
Quarter: 2007Q1

REPORT INFORMATION
  Report Type: 
  Country: None (occurrence: None)
  Receive Date: 20070103
  Receipt Date: 20061220
  Transmission Date: 20070707
  Serious: Yes (Hospitalization, Other)
  Sender: FDA-Public Use
  Company Number: 2006SP008149

PATIENT
  Age: 55 Year
  Sex: Female
  Weight: 81.8 kg

DRUGS (2)
  1. TEMODAR [Suspect]
     Indication: GLIOBLASTOMA MULTIFORME
     Dosage: 140 MG, QD; PO
     Route: 048
     Dates: start: 20061026, end: 20061204
  2. RADIATION THERAPY [Concomitant]

REACTIONS (3)
  - DEHYDRATION [None]
  - HAEMATOCRIT DECREASED [None]
  - PLATELET COUNT DECREASED [None]
